FAERS Safety Report 18900528 (Version 2)
Quarter: 2021Q1

REPORT INFORMATION
  Report Type: Report from Study
  Country: None (occurrence: BE)
  Receive Date: 20210217
  Receipt Date: 20210316
  Transmission Date: 20210420
  Serious: Yes (Life-Threatening)
  Sender: FDA-Public Use
  Company Number: BE-BIOVITRUM-2020BE8123

PATIENT
  Age: 68 Year
  Sex: Male

DRUGS (3)
  1. ANAKINRA [Suspect]
     Active Substance: ANAKINRA
     Indication: COVID-19
     Dates: start: 20201110, end: 20201113
  2. APROTININE [Suspect]
     Active Substance: APROTININ
     Indication: COVID-19
     Dates: start: 20201110, end: 20201113
  3. NADROPARINE [Suspect]
     Active Substance: NADROPARIN
     Indication: COVID-19
     Dates: start: 20201110, end: 20201113

REACTIONS (1)
  - Pneumothorax [Not Recovered/Not Resolved]
